FAERS Safety Report 21042386 (Version 1)
Quarter: 2022Q3

REPORT INFORMATION
  Report Type: Spontaneous
  Country: US (occurrence: US)
  Receive Date: 20220705
  Receipt Date: 20220705
  Transmission Date: 20221027
  Serious: Yes (Other)
  Sender: FDA-Public Use
  Company Number: US-BRISTOL-MYERS SQUIBB COMPANY-2022-062195

PATIENT
  Age: 75 Year
  Sex: Female

DRUGS (19)
  1. POMALYST [Suspect]
     Active Substance: POMALIDOMIDE
     Indication: Plasma cell myeloma
     Route: 048
     Dates: start: 20210226
  2. FLECAINIDE ACETATE [Concomitant]
     Active Substance: FLECAINIDE ACETATE
  3. FUROSEMIDE [Concomitant]
     Active Substance: FUROSEMIDE
  4. METOPROLOL TARTRATE [Concomitant]
     Active Substance: METOPROLOL TARTRATE
  5. ELIQUIS [Concomitant]
     Active Substance: APIXABAN
  6. DEXAMETHASONE [Concomitant]
     Active Substance: DEXAMETHASONE
  7. LISINOPRIL [Concomitant]
     Active Substance: LISINOPRIL
  8. FAMOTIDINE [Concomitant]
     Active Substance: FAMOTIDINE
  9. SYMBICORT [Concomitant]
     Active Substance: BUDESONIDE\FORMOTEROL FUMARATE DIHYDRATE
     Dosage: 160/4.5MCG (120 ORAL INH)
     Route: 048
  10. ZOMETA [ZOLEDRONIC ACID MONOHYDRATE] [Concomitant]
     Dosage: 5ML INJ, 5ML
  11. DARZALEX [Concomitant]
     Active Substance: DARATUMUMAB
     Dosage: 100MG/5ML [NJ, 1 VIAL
  12. CALTRATE [Concomitant]
     Active Substance: CALCIUM CARBONATE
     Dosage: CALTRATE 600 +D TAB
  13. ACETAMINOPHEN [Concomitant]
     Active Substance: ACETAMINOPHEN
     Dosage: TYLENOL 8 HR
  14. ACYCLOVIR [Concomitant]
     Active Substance: ACYCLOVIR
  15. FLONASE [Concomitant]
     Active Substance: FLUTICASONE PROPIONATE
     Dosage: 50MCG NAS SPRAY RX (120SPR)
  16. IMODIUM AD [Concomitant]
     Active Substance: LOPERAMIDE HYDROCHLORIDE
     Dosage: MINT LIQUID 120ML
  17. PROCHLORPERAZINE [Concomitant]
     Active Substance: PROCHLORPERAZINE
  18. XYZAL [Concomitant]
     Active Substance: LEVOCETIRIZINE DIHYDROCHLORIDE
  19. TYLENOL [Concomitant]
     Active Substance: ACETAMINOPHEN
     Dosage: 8 HR CAPLETS

REACTIONS (2)
  - Hypoaesthesia [Unknown]
  - Peripheral swelling [Unknown]

NARRATIVE: CASE EVENT DATE: 20220601
